FAERS Safety Report 6466749-4 (Version None)
Quarter: 2009Q4

REPORT INFORMATION
  Report Type: 
  Country: None (occurrence: None)
  Receive Date: 20091127
  Receipt Date: 20091119
  Transmission Date: 20100525
  Serious: Yes (Death, Hospitalization)
  Sender: FDA-Public Use
  Company Number: 2009-04842

PATIENT
  Age: 47 Year
  Sex: Male

DRUGS (15)
  1. VELCADE [Suspect]
     Indication: MULTIPLE MYELOMA
     Dosage: 1.6 MG/M2,
     Dates: start: 20091028, end: 20091104
  2. CCI-779(TEMSIROLIMUS) INJECTION [Suspect]
     Indication: MULTIPLE MYELOMA
     Dosage: 25 MG,
     Dates: start: 20091028, end: 20091104
  3. ACYCLOVIR [Concomitant]
  4. ASPIRIN [Concomitant]
  5. FOLIC ACID [Concomitant]
  6. MAGNESIUM OXIDE (MAGNESIUM OXIDE) [Concomitant]
  7. MEPRON [Concomitant]
  8. MULTIVITAMIN [Concomitant]
  9. PREDNISOLONE [Concomitant]
  10. PRILOSEC [Concomitant]
  11. FLUORIDE [Concomitant]
  12. VITAMIN B COMPLEX CAP [Concomitant]
  13. VITAMIN D [Concomitant]
  14. WELLBUTRIN [Concomitant]
  15. ZOCOR [Concomitant]

REACTIONS (7)
  - ASPARTATE AMINOTRANSFERASE INCREASED [None]
  - BLOOD ALKALINE PHOSPHATASE INCREASED [None]
  - BLOOD CREATININE INCREASED [None]
  - HYPOCALCAEMIA [None]
  - HYPONATRAEMIA [None]
  - INFLUENZA [None]
  - PNEUMONIA [None]
